FAERS Safety Report 7259380-4 (Version None)
Quarter: 2011Q1

REPORT INFORMATION
  Report Type: 
  Country: None (occurrence: None)
  Receive Date: 20110129
  Receipt Date: 20100826
  Transmission Date: 20110831
  Serious: No
  Sender: FDA-Public Use
  Company Number: US-ABBOTT-10P-163-0666251-00

PATIENT
  Age: 45 Year
  Sex: Female

DRUGS (3)
  1. NEXIUM [Concomitant]
     Indication: GASTROOESOPHAGEAL REFLUX DISEASE
  2. IBUPROFEN [Concomitant]
     Indication: ARTHRALGIA
  3. HUMIRA [Suspect]
     Indication: PSORIASIS
     Dosage: CHANGING TO WEEKLY DOSES
     Dates: start: 20100728, end: 20100818

REACTIONS (8)
  - HYPOAESTHESIA [None]
  - GAIT DISTURBANCE [None]
  - MALAISE [None]
  - PARAESTHESIA [None]
  - HEADACHE [None]
  - PAIN IN EXTREMITY [None]
  - MYALGIA [None]
  - ASTHENIA [None]
